FAERS Safety Report 17264697 (Version 1)
Quarter: 2020Q1

REPORT INFORMATION
  Report Type: Spontaneous
  Country: CA (occurrence: CA)
  Receive Date: 20200113
  Receipt Date: 20200113
  Transmission Date: 20200409
  Serious: Yes (Other)
  Sender: FDA-Public Use
  Company Number: CA-TEVA-2019-CA-1099524

PATIENT
  Age: 80 Year
  Sex: Female

DRUGS (8)
  1. XYREM [Suspect]
     Active Substance: SODIUM OXYBATE
     Indication: CATAPLEXY
     Dosage: 9 GRAM DAILY;
     Route: 048
  2. MORPHINE SULFATE. [Suspect]
     Active Substance: MORPHINE SULFATE
     Indication: PRODUCT USED FOR UNKNOWN INDICATION
     Route: 065
  3. XYREM [Suspect]
     Active Substance: SODIUM OXYBATE
     Route: 048
  4. XYREM [Suspect]
     Active Substance: SODIUM OXYBATE
  5. XYREM [Suspect]
     Active Substance: SODIUM OXYBATE
     Route: 048
  6. XYREM [Suspect]
     Active Substance: SODIUM OXYBATE
     Route: 048
  7. XYREM [Suspect]
     Active Substance: SODIUM OXYBATE
  8. RITALIN [Concomitant]
     Active Substance: METHYLPHENIDATE HYDROCHLORIDE

REACTIONS (13)
  - Somnolence [Unknown]
  - Dysphonia [Unknown]
  - Rib fracture [Unknown]
  - Scoliosis [Unknown]
  - Fall [Unknown]
  - Withdrawal syndrome [Unknown]
  - Nausea [Unknown]
  - Weight decreased [Unknown]
  - Malaise [Unknown]
  - Tooth injury [Unknown]
  - Extra dose administered [Unknown]
  - Incorrect dose administered [Unknown]
  - Treatment noncompliance [Unknown]
